FAERS Safety Report 7982664-9 (Version None)
Quarter: 2011Q4

REPORT INFORMATION
  Report Type: 
  Country: None (occurrence: None)
  Receive Date: 20111215
  Receipt Date: 20111207
  Transmission Date: 20120403
  Serious: Yes (Other)
  Sender: FDA-Public Use
  Company Number: AU-ALEXION-A201101681

PATIENT
  Sex: Male

DRUGS (4)
  1. SOLIRIS [Suspect]
     Dosage: 600 MG Q 14 DAYS
     Route: 042
     Dates: start: 20090619
  2. CYCLOSPORINE [Concomitant]
     Dosage: 150 MG UNK
  3. PHENOXYMETHYL PENICILLIN [Concomitant]
     Indication: PROPHYLAXIS
     Dosage: 500 MG BID
     Dates: start: 20110306
  4. CYCLOSPORINE [Concomitant]
     Dosage: 300 MG BID

REACTIONS (2)
  - RASH [None]
  - MENINGITIS MENINGOCOCCAL [None]
